FAERS Safety Report 4482698-5 (Version None)
Quarter: 2004Q4

REPORT INFORMATION
  Report Type: 
  Country: None (occurrence: None)
  Receive Date: 20041022
  Receipt Date: 20040922
  Transmission Date: 20050328
  Serious: Yes (Other)
  Sender: FDA-Public Use
  Company Number: PHEH2004US10226

PATIENT
  Age: 84 Year
  Sex: Female

DRUGS (3)
  1. DIOVAN [Suspect]
     Dosage: 1/2 TAB OF 160MG, ONCE/SINGLE
     Route: 048
     Dates: start: 20040910, end: 20040910
  2. PREMARIN [Concomitant]
  3. HYDROCHLOROTHIAZIDE [Concomitant]

REACTIONS (4)
  - BLOOD PRESSURE INCREASED [None]
  - DIZZINESS [None]
  - MALAISE [None]
  - PALPITATIONS [None]
